FAERS Safety Report 24565414 (Version 1)
Quarter: 2024Q4

REPORT INFORMATION
  Report Type: Spontaneous
  Country: ID (occurrence: ID)
  Receive Date: 20241030
  Receipt Date: 20241030
  Transmission Date: 20250115
  Serious: Yes (Life-Threatening, Hospitalization, Other)
  Sender: GLAND PHARMA LTD
  Company Number: ID-GLANDPHARMA-ID-2024GLNLIT00922

PATIENT
  Age: 27 Year
  Sex: Female

DRUGS (13)
  1. DEXMEDETOMIDINE HYDROCHLORIDE [Suspect]
     Active Substance: DEXMEDETOMIDINE HYDROCHLORIDE
     Indication: Back pain
     Route: 065
  2. KETAMINE HYDROCHLORIDE [Suspect]
     Active Substance: KETAMINE HYDROCHLORIDE
     Indication: Back pain
     Route: 065
  3. MORPHINE [Suspect]
     Active Substance: MORPHINE
     Indication: Back pain
     Route: 065
  4. MORPHINE [Suspect]
     Active Substance: MORPHINE
     Route: 042
  5. PROPOFOL [Suspect]
     Active Substance: PROPOFOL
     Indication: Back pain
     Route: 065
  6. FENTANYL [Suspect]
     Active Substance: FENTANYL
     Indication: Back pain
     Route: 065
  7. PREGABALIN [Suspect]
     Active Substance: PREGABALIN
     Indication: Back pain
     Route: 065
  8. TRAMADOL [Suspect]
     Active Substance: TRAMADOL
     Indication: Back pain
     Route: 065
  9. CELECOXIB [Suspect]
     Active Substance: CELECOXIB
     Indication: Back pain
     Route: 065
  10. MEROPENEM [Concomitant]
     Active Substance: MEROPENEM
     Indication: Meningitis bacterial
     Route: 065
  11. METHYLPREDNISOLONE [Concomitant]
     Active Substance: METHYLPREDNISOLONE
     Indication: Meningitis bacterial
     Route: 065
  12. DULOXETINE [Concomitant]
     Active Substance: DULOXETINE
     Indication: Product used for unknown indication
     Route: 065
  13. RISPERIDONE [Concomitant]
     Active Substance: RISPERIDONE
     Indication: Product used for unknown indication

REACTIONS (5)
  - Respiratory depression [Unknown]
  - Altered state of consciousness [Unknown]
  - Mood altered [Unknown]
  - Insomnia [Unknown]
  - Product use in unapproved indication [Unknown]
